FAERS Safety Report 8079527-X (Version None)
Quarter: 2012Q1

REPORT INFORMATION
  Report Type: 
  Country: None (occurrence: None)
  Receive Date: 20120128
  Receipt Date: 20110830
  Transmission Date: 20120608
  Serious: No
  Sender: FDA-Public Use
  Company Number: US-ABBOTT-11P-163-0850245-00

PATIENT
  Sex: Female
  Weight: 72.64 kg

DRUGS (4)
  1. METHOTREXATE [Concomitant]
     Indication: RHEUMATOID ARTHRITIS
  2. UNNAMED MEDICATION [Concomitant]
     Indication: HYPERTENSION
  3. HUMIRA [Suspect]
     Indication: RHEUMATOID ARTHRITIS
     Dosage: UNKNOWN
     Dates: start: 20110702
  4. UNNAMED MEDICATION [Concomitant]
     Indication: HYPOTHYROIDISM

REACTIONS (4)
  - FALL [None]
  - FEELING DRUNK [None]
  - FATIGUE [None]
  - DIZZINESS [None]
